FAERS Safety Report 14694548 (Version 4)
Quarter: 2018Q2

REPORT INFORMATION
  Report Type: Spontaneous
  Country: CA (occurrence: CA)
  Receive Date: 20180329
  Receipt Date: 20180430
  Transmission Date: 20180711
  Serious: Yes (Other)
  Sender: FDA-Public Use
  Company Number: CA-CELLTRION INC.-2017CA011371

PATIENT

DRUGS (6)
  1. INFLECTRA [Suspect]
     Active Substance: INFLIXIMAB-DYYB
     Dosage: 309 MG, CYCLIC(0, 2, 6 WEEKS, THEN EVERY 8 WEEKS
     Dates: start: 20171013
  2. INFLECTRA [Suspect]
     Active Substance: INFLIXIMAB-DYYB
     Dosage: 309 MG, CYCLIC (0, 2, 6 WEEKS, THEN EVERY 8 WEEKS)
     Dates: start: 20171208
  3. INFLECTRA [Suspect]
     Active Substance: INFLIXIMAB-DYYB
     Dosage: 315 MG, CYCLIC EVERY 6 WEEKS
     Route: 065
     Dates: start: 20180316, end: 20180316
  4. INFLECTRA [Suspect]
     Active Substance: INFLIXIMAB-DYYB
     Dosage: 309 MG, CYCLIC (0, 2, 6 WEEKS, THEN EVERY 8 WEEKS)
     Dates: start: 20180202
  5. INFLECTRA [Suspect]
     Active Substance: INFLIXIMAB-DYYB
     Dosage: 315 MG, CYCLIC EVERY 6 WEEKS
     Route: 065
     Dates: start: 20180316, end: 20180316
  6. INFLECTRA [Suspect]
     Active Substance: INFLIXIMAB-DYYB
     Indication: CROHN^S DISEASE
     Dosage: 309 MG, CYCLIC 0, 2, 6 WEEKS, THEN EVERY 8 WEEKS)
     Route: 042
     Dates: start: 20170707

REACTIONS (26)
  - Paraesthesia [Recovered/Resolved]
  - Erythema [Recovered/Resolved]
  - Drug effect incomplete [Not Recovered/Not Resolved]
  - Platelet count increased [Unknown]
  - Vitamin D decreased [Unknown]
  - Somnolence [Recovered/Resolved]
  - Product use issue [Unknown]
  - Red cell distribution width increased [Unknown]
  - Blood pressure fluctuation [Unknown]
  - Chest discomfort [Recovered/Resolved]
  - Dyspnoea [Recovered/Resolved]
  - Mean cell volume decreased [Unknown]
  - C-reactive protein increased [Unknown]
  - Drug specific antibody present [Unknown]
  - Red blood cell count increased [Unknown]
  - Haemoglobin decreased [Unknown]
  - Heart rate irregular [Unknown]
  - Abdominal pain [Not Recovered/Not Resolved]
  - Mean cell haemoglobin decreased [Unknown]
  - Increased upper airway secretion [Not Recovered/Not Resolved]
  - Dry throat [Not Recovered/Not Resolved]
  - Flushing [Recovered/Resolved]
  - Erythema [Recovered/Resolved]
  - Oral candidiasis [Unknown]
  - Heart rate increased [Recovered/Resolved]
  - Hypoaesthesia [Recovered/Resolved]

NARRATIVE: CASE EVENT DATE: 2017
